FAERS Safety Report 8623359-8 (Version None)
Quarter: 2012Q3

REPORT INFORMATION
  Report Type: 
  Country: None (occurrence: None)
  Receive Date: 20120824
  Receipt Date: 20120824
  Transmission Date: 20120928
  Serious: No
  Sender: FDA-Public Use
  Company Number: None

PATIENT
  Age: 16 Year
  Sex: Male
  Weight: 63.5036 kg

DRUGS (1)
  1. SINGULAIR [Suspect]
     Dosage: NOT REPORTED

REACTIONS (4)
  - DIZZINESS [None]
  - HEADACHE [None]
  - FATIGUE [None]
  - MALAISE [None]
